FAERS Safety Report 18269358 (Version 1)
Quarter: 2020Q3

REPORT INFORMATION
  Report Type: Spontaneous
  Country: FR (occurrence: FR)
  Receive Date: 20200915
  Receipt Date: 20200915
  Transmission Date: 20201103
  Serious: Yes (Hospitalization)
  Sender: FDA-Public Use
  Company Number: FR-JAZZ-2016-FR-017853

PATIENT

DRUGS (20)
  1. CERUBIDINE [Suspect]
     Active Substance: DAUNORUBICIN HYDROCHLORIDE
     Dosage: 80 MG, UNK
     Route: 042
     Dates: start: 20160804
  2. CERUBIDINE [Suspect]
     Active Substance: DAUNORUBICIN HYDROCHLORIDE
     Dosage: 45 MG, UNK
     Route: 042
     Dates: start: 20160829
  3. METHOTREXATE BIODIM [Suspect]
     Active Substance: METHOTREXATE
     Dosage: 15 MG, UNK
     Route: 037
     Dates: start: 20160805
  4. KIDROLASE [Suspect]
     Active Substance: ASPARAGINASE
     Indication: ACUTE LYMPHOCYTIC LEUKAEMIA
     Dosage: 9600 IU
     Route: 042
     Dates: start: 20160813, end: 20160903
  5. CERUBIDINE [Suspect]
     Active Substance: DAUNORUBICIN HYDROCHLORIDE
     Dosage: 80 MG, UNK
     Route: 042
     Dates: start: 20160808
  6. METHOTREXATE BIODIM [Suspect]
     Active Substance: METHOTREXATE
     Dosage: 15 MG, QOD
     Route: 042
     Dates: start: 20160809, end: 20160815
  7. METHOTREXATE BIODIM [Suspect]
     Active Substance: METHOTREXATE
     Indication: ACUTE LYMPHOCYTIC LEUKAEMIA
     Dosage: 15 MG, UNK
     Route: 037
     Dates: start: 20160803, end: 20160829
  8. CYTARABINE EBEWE [Suspect]
     Active Substance: CYTARABINE
     Indication: ACUTE LYMPHOCYTIC LEUKAEMIA
     Dosage: 40 MG, 1 CYCLE
     Route: 037
     Dates: start: 20160803, end: 20160830
  9. DEPO?MEDROL [Concomitant]
     Active Substance: METHYLPREDNISOLONE ACETATE
     Dosage: 40 MG, UNK
     Route: 037
     Dates: start: 20160815
  10. CERUBIDINE [Suspect]
     Active Substance: DAUNORUBICIN HYDROCHLORIDE
     Indication: ACUTE LYMPHOCYTIC LEUKAEMIA
     Dosage: 80 MG, UNK
     Route: 042
     Dates: start: 20160803, end: 20160830
  11. CERUBIDINE [Suspect]
     Active Substance: DAUNORUBICIN HYDROCHLORIDE
     Dosage: 45 MG, UNK
     Route: 042
     Dates: start: 20160830
  12. DEPO?MEDROL [Concomitant]
     Active Substance: METHYLPREDNISOLONE ACETATE
     Indication: PRODUCT USED FOR UNKNOWN INDICATION
     Dosage: 40 MG, UNK
     Route: 037
     Dates: start: 20160803
  13. VINCRISTINE HOSPIRA [Suspect]
     Active Substance: VINCRISTINE
     Indication: ACUTE LYMPHOCYTIC LEUKAEMIA
     Dosage: 2 MG, 7 DAYS
     Route: 042
     Dates: start: 20160803, end: 20160830
  14. ENDOXAN [Suspect]
     Active Substance: CYCLOPHOSPHAMIDE
     Dosage: 1120MG, UNK
     Route: 042
     Dates: start: 20160829
  15. CYTARABINE EBEWE [Suspect]
     Active Substance: CYTARABINE
     Dosage: 40 MG, QOD
     Route: 037
     Dates: start: 20160809, end: 20160815
  16. VINDESINE [Concomitant]
     Active Substance: VINDESINE
     Indication: PRODUCT USED FOR UNKNOWN INDICATION
     Dosage: 4 MG, UNK
     Route: 042
     Dates: start: 20160830
  17. KIDROLASE [Suspect]
     Active Substance: ASPARAGINASE
     Dosage: 9600 IU
     Route: 042
     Dates: start: 20160903
  18. VINCRISTINE HOSPIRA [Suspect]
     Active Substance: VINCRISTINE
     Dosage: 2 MG, UNK
     Route: 042
     Dates: start: 20160813
  19. ENDOXAN [Suspect]
     Active Substance: CYCLOPHOSPHAMIDE
     Indication: ACUTE LYMPHOCYTIC LEUKAEMIA
     Dosage: 1180 MG, UNK
     Route: 042
     Dates: start: 20160803, end: 20160830
  20. DEPO?MEDROL [Concomitant]
     Active Substance: METHYLPREDNISOLONE ACETATE
     Dosage: 40 MG, UNK
     Route: 037
     Dates: start: 20160813

REACTIONS (4)
  - Rash [Recovered/Resolved]
  - Mucosal inflammation [Recovered/Resolved]
  - Colitis [Recovered/Resolved]
  - Pyrexia [Recovered/Resolved]

NARRATIVE: CASE EVENT DATE: 20160815
